FAERS Safety Report 12924439 (Version 1)
Quarter: 2016Q4

REPORT INFORMATION
  Report Type: Spontaneous
  Country: US (occurrence: US)
  Receive Date: 20161109
  Receipt Date: 20161109
  Transmission Date: 20170207
  Serious: No
  Sender: FDA-Public Use
  Company Number: US-BRISTOL-MYERS SQUIBB COMPANY-BMS-2016-088355

PATIENT
  Sex: Female

DRUGS (1)
  1. OPDIVO [Suspect]
     Active Substance: NIVOLUMAB
     Indication: RENAL CANCER
     Route: 042

REACTIONS (10)
  - Nasopharyngitis [Unknown]
  - Conjunctivitis [Recovered/Resolved]
  - Thyroid function test abnormal [Unknown]
  - Alopecia [Recovering/Resolving]
  - Fluid retention [Unknown]
  - Cough [Unknown]
  - Fatigue [Unknown]
  - Insomnia [Unknown]
  - Eye inflammation [Unknown]
  - Swelling face [Unknown]
